FAERS Safety Report 6841157-2 (Version None)
Quarter: 2010Q3

REPORT INFORMATION
  Report Type: 
  Country: None (occurrence: None)
  Receive Date: 20100714
  Receipt Date: 20070626
  Transmission Date: 20110219
  Serious: Yes (Other)
  Sender: FDA-Public Use
  Company Number: US-PFIZER INC-2007054281

PATIENT
  Sex: Female

DRUGS (3)
  1. CHANTIX [Suspect]
     Indication: SMOKING CESSATION THERAPY
     Dosage: EVERY DAY
     Dates: start: 20070619
  2. ZOLOFT [Concomitant]
  3. ATIVAN [Concomitant]

REACTIONS (6)
  - ABNORMAL DREAMS [None]
  - DYSGEUSIA [None]
  - HUNGER [None]
  - INSOMNIA [None]
  - SLEEP DISORDER [None]
  - STRESS [None]
